FAERS Safety Report 23251306 (Version 1)
Quarter: 2023Q4

REPORT INFORMATION
  Report Type: Report from Study
  Country: US (occurrence: US)
  Receive Date: 20231201
  Receipt Date: 20231201
  Transmission Date: 20240110
  Serious: Yes (Hospitalization)
  Sender: FDA-Public Use
  Company Number: US-Eisai Medical Research-EC-2023-146064

PATIENT
  Age: 65 Year
  Sex: Male

DRUGS (3)
  1. LENVIMA [Suspect]
     Active Substance: LENVATINIB
     Indication: Renal cancer
     Route: 048
     Dates: start: 202304, end: 202309
  2. LENVIMA [Suspect]
     Active Substance: LENVATINIB
     Route: 048
  3. EVEROLIMUS [Concomitant]
     Active Substance: EVEROLIMUS

REACTIONS (2)
  - Osteonecrosis of jaw [Unknown]
  - Procedural site reaction [Unknown]

NARRATIVE: CASE EVENT DATE: 20230101
